FAERS Safety Report 15201420 (Version 1)
Quarter: 2018Q3

REPORT INFORMATION
  Report Type: Spontaneous
  Country: FR (occurrence: FR)
  Receive Date: 20180726
  Receipt Date: 20180726
  Transmission Date: 20181010
  Serious: Yes (Other)
  Sender: FDA-Public Use
  Company Number: FR-MERCK KGAA-2052761

PATIENT
  Age: 50 Year
  Sex: Female
  Weight: 66 kg

DRUGS (3)
  1. NOVOTHYROX [Suspect]
     Active Substance: LEVOTHYROXINE SODIUM
     Indication: THYROIDECTOMY
     Route: 048
     Dates: start: 2010, end: 20180327
  2. NOVOTHYROX [Suspect]
     Active Substance: LEVOTHYROXINE SODIUM
     Route: 048
     Dates: start: 2010, end: 20180327
  3. L THYROXIN HENNING [Concomitant]
     Active Substance: LEVOTHYROXINE SODIUM
     Route: 048
     Dates: start: 20180327

REACTIONS (11)
  - Decreased appetite [Recovered/Resolved]
  - Asthenia [Recovered/Resolved]
  - Insomnia [Recovered/Resolved]
  - Arthralgia [Recovered/Resolved]
  - Blood thyroid stimulating hormone normal [Recovered/Resolved]
  - Crying [Recovered/Resolved]
  - Depression [Recovered/Resolved]
  - Diffuse alopecia [Unknown]
  - Pain [Recovered/Resolved]
  - Arrested labour [Recovered/Resolved]
  - Vomiting [Recovered/Resolved]

NARRATIVE: CASE EVENT DATE: 201706
